FAERS Safety Report 15753092 (Version 1)
Quarter: 2018Q4

REPORT INFORMATION
  Report Type: Spontaneous
  Country: US (occurrence: US)
  Receive Date: 20181221
  Receipt Date: 20181221
  Transmission Date: 20190205
  Serious: No
  Sender: FDA-Public Use
  Company Number: US-009507513-1811USA011662

PATIENT
  Sex: Female
  Weight: 101.13 kg

DRUGS (1)
  1. NEXPLANON [Suspect]
     Active Substance: ETONOGESTREL
     Indication: CONTRACEPTION
     Dosage: 68 MILLIGRAM, 1 ROD EVERY 3 YEARS
     Route: 059
     Dates: start: 20170802, end: 20180912

REACTIONS (1)
  - Implant site rash [Recovered/Resolved]

NARRATIVE: CASE EVENT DATE: 2017
